FAERS Safety Report 18152677 (Version 1)
Quarter: 2020Q3

REPORT INFORMATION
  Report Type: Spontaneous
  Country: US (occurrence: US)
  Receive Date: 20200814
  Receipt Date: 20200814
  Transmission Date: 20201103
  Serious: No
  Sender: FDA-Public Use
  Company Number: US-GILEAD-2020-0489262

PATIENT
  Age: 48 Year
  Sex: Female

DRUGS (17)
  1. CAYSTON [Suspect]
     Active Substance: AZTREONAM
     Indication: CYSTIC FIBROSIS
     Dosage: UNK, TID, 28 DAYS
     Route: 065
  2. OYSTER SHELL CALCIUM [Concomitant]
     Active Substance: CALCIUM
  3. ESTRACE [Concomitant]
     Active Substance: ESTRADIOL
  4. CAYSTON [Suspect]
     Active Substance: AZTREONAM
     Indication: PSEUDOMONAS INFECTION
  5. PROVENTIL [SALBUTAMOL SULFATE] [Concomitant]
  6. MONTELUKAST SODIUM. [Concomitant]
     Active Substance: MONTELUKAST SODIUM
  7. CLARITIN [Concomitant]
     Active Substance: LORATADINE
  8. D3 50 [Concomitant]
  9. NASONEX [Concomitant]
     Active Substance: MOMETASONE FUROATE
  10. RALOXIFENE HYDROCHLORIDE. [Concomitant]
     Active Substance: RALOXIFENE HYDROCHLORIDE
  11. PULMOZYME [Concomitant]
     Active Substance: DORNASE ALFA
  12. TRIKAL [Concomitant]
  13. SYMBICORT [Concomitant]
     Active Substance: BUDESONIDE\FORMOTEROL FUMARATE DIHYDRATE
  14. BETHKIS [Concomitant]
     Active Substance: TOBRAMYCIN
  15. FLONASE [Concomitant]
     Active Substance: FLUTICASONE PROPIONATE
  16. ALENDRONATE SODIUM. [Concomitant]
     Active Substance: ALENDRONATE SODIUM
  17. ZITHROMAX [Concomitant]
     Active Substance: AZITHROMYCIN DIHYDRATE

REACTIONS (1)
  - Weight fluctuation [Unknown]

NARRATIVE: CASE EVENT DATE: 202003
